FAERS Safety Report 10708820 (Version 3)
Quarter: 2015Q1

REPORT INFORMATION
  Report Type: Spontaneous
  Country: US (occurrence: US)
  Receive Date: 20150113
  Receipt Date: 20150227
  Transmission Date: 20150721
  Serious: No
  Sender: FDA-Public Use
  Company Number: US-009507513-1501USA000024

PATIENT
  Sex: Male

DRUGS (3)
  1. DULERA [Suspect]
     Active Substance: FORMOTEROL FUMARATE DIHYDRATE\MOMETASONE FUROATE
     Dosage: ^TWO PUFFS TWICE A DAY^
     Route: 055
  2. DULERA [Suspect]
     Active Substance: FORMOTEROL FUMARATE DIHYDRATE\MOMETASONE FUROATE
     Dosage: ^TWO PUFFS TWICE A DAY^
     Route: 055
  3. DULERA [Suspect]
     Active Substance: FORMOTEROL FUMARATE DIHYDRATE\MOMETASONE FUROATE
     Dosage: TWO PUFFS TWICE A DAY
     Route: 055
     Dates: start: 2014

REACTIONS (5)
  - Drug dose omission [Unknown]
  - Overdose [Unknown]
  - Incorrect dose administered [Unknown]
  - Product quality issue [Unknown]
  - No adverse event [Unknown]

NARRATIVE: CASE EVENT DATE: 2014
